FAERS Safety Report 7773189-4 (Version None)
Quarter: 2011Q3

REPORT INFORMATION
  Report Type: 
  Country: None (occurrence: None)
  Receive Date: 20110921
  Receipt Date: 20110921
  Transmission Date: 20111222
  Serious: Yes (Hospitalization)
  Sender: FDA-Public Use
  Company Number: None

PATIENT
  Age: 25 Year
  Sex: Male
  Weight: 65.2 kg

DRUGS (2)
  1. ACETAMINOPHEN [Suspect]
     Indication: PAIN
     Dosage: 500 MG OTHER PO
     Route: 048
     Dates: start: 20110911, end: 20110911
  2. CELECOXIB [Suspect]
     Indication: PAIN
     Dosage: 200 MG OTHER PO
     Route: 048
     Dates: start: 20110911, end: 20110911

REACTIONS (5)
  - FAECES DISCOLOURED [None]
  - ABDOMINAL DISCOMFORT [None]
  - MULTIPLE DRUG OVERDOSE INTENTIONAL [None]
  - SOMNOLENCE [None]
  - SUICIDE ATTEMPT [None]
